FAERS Safety Report 4948222-5 (Version None)
Quarter: 2006Q1

REPORT INFORMATION
  Report Type: 
  Country: None (occurrence: None)
  Receive Date: 20060320
  Receipt Date: 20060223
  Transmission Date: 20060701
  Serious: Yes (Hospitalization)
  Sender: FDA-Public Use
  Company Number: JP-BRISTOL-MYERS SQUIBB COMPANY-13300348

PATIENT
  Age: 77 Year
  Sex: Male

DRUGS (5)
  1. MEVALOTIN [Suspect]
     Indication: HYPERLIPIDAEMIA
     Route: 048
     Dates: start: 20060208, end: 20060221
  2. ACECOL [Concomitant]
     Indication: HYPERTENSION
     Route: 048
     Dates: start: 20030611
  3. DILTIAZEM HCL [Concomitant]
     Indication: HYPERTENSION
     Route: 048
     Dates: start: 19950208
  4. EUGLUCON [Concomitant]
     Indication: DIABETES MELLITUS
     Route: 048
     Dates: start: 20001124
  5. METFORMIN HCL [Concomitant]
     Indication: DIABETES MELLITUS
     Route: 048
     Dates: start: 20050208

REACTIONS (2)
  - PNEUMONIA [None]
  - RHABDOMYOLYSIS [None]
